FAERS Safety Report 14375043 (Version 1)
Quarter: 2018Q1

REPORT INFORMATION
  Report Type: Spontaneous
  Country: US (occurrence: US)
  Receive Date: 20180110
  Receipt Date: 20180110
  Transmission Date: 20180509
  Serious: Yes (Death)
  Sender: FDA-Public Use
  Company Number: None

PATIENT
  Age: 64 Year
  Sex: Female
  Weight: 79.2 kg

DRUGS (2)
  1. ETOPOSIDE (VP-16) [Suspect]
     Active Substance: ETOPOSIDE
     Dates: end: 20170524
  2. CISPLATIN. [Suspect]
     Active Substance: CISPLATIN
     Dates: end: 20170522

REACTIONS (18)
  - Dehydration [None]
  - Oesophagitis [None]
  - Nausea [None]
  - Decreased appetite [None]
  - Deep vein thrombosis [None]
  - Electrolyte imbalance [None]
  - Asthenia [None]
  - Anaemia [None]
  - Cough [None]
  - Renal impairment [None]
  - Musculoskeletal pain [None]
  - Blood potassium decreased [None]
  - Oedema peripheral [None]
  - Chest pain [None]
  - White blood cell count decreased [None]
  - Blood creatinine increased [None]
  - Pulmonary embolism [None]
  - Fatigue [None]

NARRATIVE: CASE EVENT DATE: 20170604
